FAERS Safety Report 6065625-9 (Version None)
Quarter: 2009Q1

REPORT INFORMATION
  Report Type: 
  Country: None (occurrence: None)
  Receive Date: 20090130
  Receipt Date: 20090116
  Transmission Date: 20090719
  Serious: Yes (Hospitalization)
  Sender: FDA-Public Use
  Company Number: 6048305

PATIENT
  Age: 82 Year
  Sex: Male

DRUGS (13)
  1. BISOPROLOL FUMARATE [Suspect]
     Indication: DRUG USE FOR UNKNOWN INDICATION
     Dosage: 1 DOSAGE FORMS (1 DOSAGE FORMS, 1 IN 1 D) ORAL
     Route: 048
     Dates: start: 20081204, end: 20081208
  2. TAHOR               (40 MG, TABLET) (ATORVASTATIN CALCIUM) [Suspect]
     Indication: DRUG USE FOR UNKNOWN INDICATION
     Dosage: (1 DOSAGE FORMS,) ORAL
     Route: 048
     Dates: start: 20081127, end: 20081208
  3. TOPALGIC              (100 MG) (TRAMADOL HYDROCHLORIDE) [Suspect]
     Indication: SKIN ULCER
     Dosage: 2 DOSAGE FORMS (2 DOSAGE FORMS, 1 D) ORAL
     Route: 048
     Dates: start: 20081130, end: 20081209
  4. KARDEGIC        (ACETYLSALICYLATE LYSINE) [Suspect]
     Indication: DRUG USE FOR UNKNOWN INDICATION
     Dosage: 1 DOSAGE FORMS (1 DOSAGE FORMS, 1 IN 1 D) ORAL
     Route: 048
     Dates: start: 20081127
  5. NITROGLYCERIN [Suspect]
     Indication: DRUG USE FOR UNKNOWN INDICATION
     Dosage: 1 DOSAGE FORMS (1 DOSAGE FORMS, 1 IN 1 D) ORAL
     Route: 062
     Dates: start: 20081127
  6. LOVENOX [Suspect]
     Indication: DRUG USE FOR UNKNOWN INDICATION
     Dosage: 0.4 MG (0.4 MG, 1 IN 1 D) SUBCUTANEOUS
     Route: 058
     Dates: start: 20081126
  7. PLAVIX [Concomitant]
  8. RAMIPRIL [Concomitant]
  9. AMLODIPINE BESYLATE [Concomitant]
  10. NEXIUM [Concomitant]
  11. LASIX [Concomitant]
  12. SPIRIVA [Concomitant]
  13. SYMBICORT [Concomitant]

REACTIONS (3)
  - CYTOLYTIC HEPATITIS [None]
  - ERYSIPELAS [None]
  - SEPTIC SHOCK [None]
